FAERS Safety Report 24267262 (Version 1)
Quarter: 2024Q3

REPORT INFORMATION
  Report Type: Spontaneous
  Country: AU (occurrence: AU)
  Receive Date: 20240830
  Receipt Date: 20240830
  Transmission Date: 20241017
  Serious: Yes (Other)
  Sender: CSL BEHRING
  Company Number: AU-BEH-2024177881

PATIENT
  Age: 82 Year
  Sex: Male

DRUGS (1)
  1. HUMAN IMMUNOGLOBULIN G [Suspect]
     Active Substance: HUMAN IMMUNOGLOBULIN G
     Indication: Hypogammaglobulinaemia
     Dosage: 30 G, QMT (EVERY 4 WEEK)
     Route: 065

REACTIONS (2)
  - Meningitis [Unknown]
  - Headache [Unknown]

NARRATIVE: CASE EVENT DATE: 20240806
